FAERS Safety Report 9440047 (Version 1)
Quarter: 2013Q3

REPORT INFORMATION
  Report Type: Spontaneous
  Country: US (occurrence: US)
  Receive Date: 20130805
  Receipt Date: 20130805
  Transmission Date: 20140515
  Serious: Yes (Hospitalization)
  Sender: FDA-Public Use
  Company Number: US-MYLANLABS-2013S1001284

PATIENT
  Age: 60 Year
  Sex: Female
  Weight: 52 kg

DRUGS (3)
  1. MELPHALAN HYDROCHLORIDE FOR INJECTION [Suspect]
     Indication: STEM CELL TRANSPLANT
     Route: 042
     Dates: start: 20130108, end: 20130108
  2. MELPHALAN HYDROCHLORIDE FOR INJECTION [Suspect]
     Indication: PLASMA CELL MYELOMA
     Route: 042
     Dates: start: 20130108, end: 20130108
  3. MELPHALAN HYDROCHLORIDE FOR INJECTION [Suspect]
     Indication: OFF LABEL USE
     Route: 042
     Dates: start: 20130108, end: 20130108

REACTIONS (2)
  - Drug ineffective for unapproved indication [Recovered/Resolved]
  - Therapeutic response delayed [Recovered/Resolved]
